FAERS Safety Report 5455560-9 (Version None)
Quarter: 2007Q3

REPORT INFORMATION
  Report Type: 
  Country: None (occurrence: None)
  Receive Date: 20070918
  Receipt Date: 20070424
  Transmission Date: 20080115
  Serious: Yes (Hospitalization, Disabling)
  Sender: FDA-Public Use
  Company Number: US-ASTRAZENECA-2006UW21944

PATIENT
  Sex: Male
  Weight: 127.3 kg

DRUGS (5)
  1. SEROQUEL [Suspect]
     Indication: MENTAL DISORDER
     Route: 048
     Dates: end: 20010101
  2. ABILIFY [Concomitant]
     Dates: start: 20040101
  3. HALDOL [Concomitant]
     Dates: start: 19880101
  4. NAVANE [Concomitant]
  5. RISPERDAL [Concomitant]

REACTIONS (1)
  - TYPE 1 DIABETES MELLITUS [None]
